FAERS Safety Report 5784902-X (Version None)
Quarter: 2008Q2

REPORT INFORMATION
  Report Type: 
  Country: None (occurrence: None)
  Receive Date: 20080605
  Receipt Date: 20080416
  Transmission Date: 20081010
  Serious: No
  Sender: FDA-Public Use
  Company Number: A0723103A

PATIENT
  Age: 63 Year
  Sex: Female

DRUGS (5)
  1. ALLI [Suspect]
     Dates: start: 20080403, end: 20080404
  2. EX-LAX [Concomitant]
  3. OMEGA 3 [Concomitant]
  4. HYDROCHLOROTHIAZIDE [Concomitant]
  5. METAMUCIL [Concomitant]

REACTIONS (8)
  - ABDOMINAL DISTENSION [None]
  - CONSTIPATION [None]
  - DEPRESSED MOOD [None]
  - DISCOMFORT [None]
  - DYSPNOEA [None]
  - FLATULENCE [None]
  - MALAISE [None]
  - SENSORY DISTURBANCE [None]
